FAERS Safety Report 21887856 (Version 1)
Quarter: 2023Q1

REPORT INFORMATION
  Report Type: Spontaneous
  Country: PL (occurrence: PL)
  Receive Date: 20230120
  Receipt Date: 20230120
  Transmission Date: 20230417
  Serious: Yes (Other)
  Sender: FDA-Public Use
  Company Number: PL-BAYER-2023P003170

PATIENT
  Age: 80 Year
  Sex: Male
  Weight: 50.7 kg

DRUGS (1)
  1. XARELTO [Suspect]
     Active Substance: RIVAROXABAN
     Indication: Atrial fibrillation
     Dosage: 20 MG, QD
     Route: 048
     Dates: start: 20221101, end: 20230103

REACTIONS (2)
  - Hypersensitivity vasculitis [Unknown]
  - Purpura [Unknown]

NARRATIVE: CASE EVENT DATE: 20230102
